FAERS Safety Report 8180713-9 (Version None)
Quarter: 2012Q1

REPORT INFORMATION
  Report Type: 
  Country: None (occurrence: None)
  Receive Date: 20120302
  Receipt Date: 20120227
  Transmission Date: 20120608
  Serious: Yes (Other)
  Sender: FDA-Public Use
  Company Number: US-CELGENEUS-163-21880-12022096

PATIENT
  Sex: Male

DRUGS (9)
  1. ALLOPURINOL [Concomitant]
     Route: 065
  2. FENOFIBRATE [Concomitant]
     Route: 065
  3. WARFARIN SODIUM [Concomitant]
     Route: 065
  4. FLUCONAZOLE [Concomitant]
     Route: 065
  5. REVLIMID [Suspect]
     Dosage: 10 MILLIGRAM
     Route: 048
     Dates: start: 20120113
  6. VALACICLOVIR [Concomitant]
     Route: 065
  7. DEXAMETHASONE [Concomitant]
     Route: 065
  8. HYDROCORTISONE [Concomitant]
     Route: 065
  9. TRAMADOL HCL [Concomitant]
     Route: 065

REACTIONS (2)
  - ADVERSE EVENT [None]
  - UPPER LIMB FRACTURE [None]
